FAERS Safety Report 9442535 (Version 2)
Quarter: 2013Q3

REPORT INFORMATION
  Report Type: Spontaneous
  Country: JP (occurrence: JP)
  Receive Date: 20130806
  Receipt Date: 20130913
  Transmission Date: 20140515
  Serious: No
  Sender: FDA-Public Use
  Company Number: JP-PFIZER INC-2013226982

PATIENT
  Age: 15 Year
  Sex: Female

DRUGS (1)
  1. JZOLOFT [Suspect]
     Indication: DEPRESSION
     Dosage: 25 MG, 1X/DAY
     Route: 048
     Dates: start: 20130801, end: 20130803

REACTIONS (2)
  - Anxiety [Recovered/Resolved]
  - Irritability [Recovered/Resolved]
